FAERS Safety Report 9266027 (Version 2)
Quarter: 2013Q3

REPORT INFORMATION
  Report Type: Spontaneous
  Country: US (occurrence: US)
  Receive Date: 20130501
  Receipt Date: 20130930
  Transmission Date: 20140515
  Serious: Yes (Death, Hospitalization)
  Sender: FDA-Public Use
  Company Number: US-B.I. PHARMACEUTICALS,INC./RIDGEFIELD-2013-BI-11942BP

PATIENT
  Age: 78 Year
  Sex: Male
  Weight: 71.21 kg

DRUGS (14)
  1. PRADAXA [Suspect]
     Indication: ANTICOAGULANT THERAPY
     Dates: start: 20110725
  2. PRADAXA [Suspect]
     Indication: ATRIAL FIBRILLATION
  3. WARFARIN [Suspect]
     Indication: ATRIAL FIBRILLATION
     Dosage: 2 MG
     Route: 048
     Dates: start: 20110808, end: 20110810
  4. VALTREX [Concomitant]
  5. FUROSEMIDE [Concomitant]
     Dosage: 80 MG
     Route: 048
  6. GLIMEPIRIDE [Concomitant]
     Dosage: 4 MG
     Route: 048
  7. ISOSORBIDE MONONITRATE [Concomitant]
     Dosage: 60 MG
     Route: 048
  8. KLOR-CON [Concomitant]
     Dosage: 20 MEQ
     Route: 048
  9. METOPROLOL SUCCINATE [Concomitant]
     Dosage: 25 MG
  10. MUCINEX DM [Concomitant]
     Dosage: 1200 MG
     Route: 048
  11. PAROXETINE HCL [Concomitant]
     Dosage: 20 MG
     Route: 048
  12. SUPER B COMPLEX [Concomitant]
     Route: 048
  13. TERAZOSIN [Concomitant]
     Dosage: 4 MG
     Route: 048
  14. DILTIAZEM CD [Concomitant]
     Dosage: 180 MG
     Route: 048

REACTIONS (2)
  - Haemorrhage [Fatal]
  - Upper gastrointestinal haemorrhage [Recovered/Resolved]
